FAERS Safety Report 7708807-X (Version None)
Quarter: 2011Q3

REPORT INFORMATION
  Report Type: 
  Country: None (occurrence: None)
  Receive Date: 20110825
  Receipt Date: 20110816
  Transmission Date: 20111222
  Serious: Yes (Hospitalization)
  Sender: FDA-Public Use
  Company Number: US-ABBOTT-11P-163-0846079-00

PATIENT
  Sex: Male
  Weight: 80.812 kg

DRUGS (2)
  1. COPAXONE [Suspect]
     Indication: MULTIPLE SCLEROSIS
     Dates: start: 20110515
  2. NIASPAN [Suspect]
     Indication: BLOOD CHOLESTEROL INCREASED
     Dosage: AT BEDTIME
     Dates: start: 20110608, end: 20110610

REACTIONS (12)
  - NAUSEA [None]
  - HYPERHIDROSIS [None]
  - URTICARIA [None]
  - RASH [None]
  - ERYTHEMA [None]
  - VOMITING [None]
  - SKIN BURNING SENSATION [None]
  - DEHYDRATION [None]
  - HYPERSENSITIVITY [None]
  - PRURITUS [None]
  - INSOMNIA [None]
  - FALL [None]
